FAERS Safety Report 13151914 (Version 1)
Quarter: 2017Q1

REPORT INFORMATION
  Report Type: Spontaneous
  Country: US (occurrence: US)
  Receive Date: 20170125
  Receipt Date: 20170125
  Transmission Date: 20170428
  Serious: No
  Sender: FDA-Public Use
  Company Number: PHEH2017US002639

PATIENT
  Age: 35 Year
  Sex: Female
  Weight: 54.43 kg

DRUGS (3)
  1. ENTRESTO [Suspect]
     Active Substance: SACUBITRIL\VALSARTAN
     Indication: CARDIAC FAILURE
     Dosage: 50 MG, BID
     Route: 048
     Dates: start: 20151216
  2. ENTRESTO [Suspect]
     Active Substance: SACUBITRIL\VALSARTAN
     Dosage: 50 MG, BID
     Route: 048
  3. ENTRESTO [Suspect]
     Active Substance: SACUBITRIL\VALSARTAN
     Dosage: UNK
     Route: 048

REACTIONS (2)
  - Fatigue [Recovering/Resolving]
  - Dehydration [Recovering/Resolving]

NARRATIVE: CASE EVENT DATE: 20170101
